FAERS Safety Report 7207238-9 (Version None)
Quarter: 2010Q4

REPORT INFORMATION
  Report Type: 
  Country: None (occurrence: None)
  Receive Date: 20101230
  Receipt Date: 20101230
  Transmission Date: 20110411
  Serious: Yes (Other)
  Sender: FDA-Public Use
  Company Number: None

PATIENT
  Sex: Female
  Weight: 50.8029 kg

DRUGS (4)
  1. IBUPROFEN [Suspect]
     Indication: ARTHRALGIA
     Dosage: 400 MG Q 4 - 6 HR PO, AS NEEDED
     Route: 048
     Dates: start: 20071001, end: 20100801
  2. IBUPROFEN [Suspect]
     Indication: HEADACHE
     Dosage: 400 MG Q 4 - 6 HR PO, AS NEEDED
     Route: 048
     Dates: start: 20071001, end: 20100801
  3. IBUPROFEN [Suspect]
     Indication: TENDONITIS
     Dosage: 400 MG Q 4 - 6 HR PO, AS NEEDED
     Route: 048
     Dates: start: 20071001, end: 20100801
  4. GLUCOSOMINE CHONDROITIN 1500MG LEADER [Suspect]
     Indication: ARTHRALGIA
     Dosage: 1500MG Q EACH MORNING PO, ONCE A DAY
     Route: 048
     Dates: start: 20081001, end: 20101101

REACTIONS (1)
  - INSOMNIA [None]
